FAERS Safety Report 4495101-6 (Version None)
Quarter: 2004Q4

REPORT INFORMATION
  Report Type: 
  Country: None (occurrence: None)
  Receive Date: 20041105
  Receipt Date: 20041105
  Transmission Date: 20050328
  Serious: Yes (Hospitalization)
  Sender: FDA-Public Use
  Company Number: None

PATIENT
  Age: 83 Year
  Sex: Male
  Weight: 75 kg

DRUGS (2)
  1. ZOCOR [Suspect]
     Indication: HYPERLIPIDAEMIA
     Dosage: 80 MG   DAILY   ORAL
     Route: 048
     Dates: start: 20021212, end: 20041101
  2. AMIODARONE    200 MG [Suspect]
     Indication: CORONARY ARTERY DISEASE
     Dosage: 100      DAILY    ORAL
     Route: 048
     Dates: start: 20021212, end: 20041101

REACTIONS (1)
  - RHABDOMYOLYSIS [None]
